FAERS Safety Report 10517131 (Version 1)
Quarter: 2014Q4

REPORT INFORMATION
  Report Type: Spontaneous
  Country: US (occurrence: US)
  Receive Date: 20141014
  Receipt Date: 20141014
  Transmission Date: 20150528
  Serious: No
  Sender: FDA-Public Use
  Company Number: US-PFIZER INC-2014272957

PATIENT
  Age: 21 Year
  Sex: Female

DRUGS (2)
  1. CHAPSTICK HYDRATION LOCK DAY AND NIGHT [Suspect]
     Active Substance: OCTINOXATE\OXYBENZONE\PETROLATUM
     Indication: HYPERAESTHESIA
  2. CHAPSTICK HYDRATION LOCK DAY AND NIGHT [Suspect]
     Active Substance: OCTINOXATE\OXYBENZONE\PETROLATUM
     Indication: LIP PAIN
     Dosage: UNK

REACTIONS (4)
  - Lip swelling [Unknown]
  - Lip pruritus [Unknown]
  - Drug effect incomplete [Unknown]
  - Reaction to drug excipients [Unknown]
